FAERS Safety Report 8015999-4 (Version None)
Quarter: 2011Q4

REPORT INFORMATION
  Report Type: 
  Country: None (occurrence: None)
  Receive Date: 20111230
  Receipt Date: 20111230
  Transmission Date: 20120403
  Serious: Yes (Other)
  Sender: FDA-Public Use
  Company Number: None

PATIENT
  Age: 48 Year
  Sex: Male
  Weight: 77.11 kg

DRUGS (3)
  1. ALCOHOL [Concomitant]
     Route: 048
  2. NAPROXEN [Concomitant]
     Route: 048
  3. ZOLPIDEM [Suspect]
     Indication: INSOMNIA
     Dosage: 5-10 MG
     Route: 048

REACTIONS (8)
  - SOMNAMBULISM [None]
  - RIB FRACTURE [None]
  - LOSS OF CONSCIOUSNESS [None]
  - AGGRESSION [None]
  - EXCORIATION [None]
  - CONTUSION [None]
  - SWELLING [None]
  - AMNESIA [None]
